FAERS Safety Report 12336646 (Version 1)
Quarter: 2016Q2

REPORT INFORMATION
  Report Type: Spontaneous
  Country: US (occurrence: None)
  Receive Date: 20160504
  Receipt Date: 20160504
  Transmission Date: 20160815
  Serious: Yes (Hospitalization)
  Sender: FDA-Public Use
  Company Number: None

PATIENT
  Age: 61 Year
  Sex: Female
  Weight: 94.5 kg

DRUGS (1)
  1. OXALIPLATIN. [Suspect]
     Active Substance: OXALIPLATIN
     Indication: MALIGNANT PERITONEAL NEOPLASM
     Route: 042
     Dates: start: 20160325, end: 20160412

REACTIONS (5)
  - Atrial fibrillation [None]
  - Dysphagia [None]
  - Dysphonia [None]
  - Angina pectoris [None]
  - Chest discomfort [None]

NARRATIVE: CASE EVENT DATE: 20160412
